FAERS Safety Report 23860435 (Version 1)
Quarter: 2024Q2

REPORT INFORMATION
  Report Type: Spontaneous
  Country: NL (occurrence: NL)
  Receive Date: 20240516
  Receipt Date: 20240516
  Transmission Date: 20240716
  Serious: Yes (Other)
  Sender: FDA-Public Use
  Company Number: NL-JNJFOC-20240528463

PATIENT
  Sex: Male
  Weight: 84 kg

DRUGS (2)
  1. IMBRUVICA [Suspect]
     Active Substance: IBRUTINIB
     Indication: Lymphoma
     Route: 048
     Dates: start: 20220825, end: 20240506
  2. RITUXIMAB [Suspect]
     Active Substance: RITUXIMAB
     Indication: Product used for unknown indication
     Dosage: 6 INFUSIONS
     Route: 065
     Dates: end: 202212

REACTIONS (3)
  - Pneumonitis [Unknown]
  - Myalgia [Unknown]
  - Off label use [Unknown]
